FAERS Safety Report 6183851-5 (Version None)
Quarter: 2009Q2

REPORT INFORMATION
  Report Type: 
  Country: None (occurrence: None)
  Receive Date: 20090508
  Receipt Date: 20090430
  Transmission Date: 20091009
  Serious: Yes (Other)
  Sender: FDA-Public Use
  Company Number: FR-ROCHE-628526

PATIENT
  Age: 72 Year
  Sex: Female
  Weight: 62 kg

DRUGS (7)
  1. PEGASYS [Suspect]
     Indication: HEPATITIS C
     Route: 058
     Dates: start: 20090109
  2. COPEGUS [Suspect]
     Indication: HEPATITIS C
     Route: 048
     Dates: start: 20090109
  3. FOSAVANCE [Concomitant]
  4. DEROXAT [Concomitant]
  5. PRAZEPAM [Concomitant]
  6. FORLAX [Concomitant]
  7. DOLIPRANE [Concomitant]

REACTIONS (1)
  - PLEURAL EFFUSION [None]
